FAERS Safety Report 23224391 (Version 4)
Quarter: 2023Q4

REPORT INFORMATION
  Report Type: Spontaneous
  Country: JP (occurrence: JP)
  Receive Date: 20231124
  Receipt Date: 20231219
  Transmission Date: 20240110
  Serious: Yes (Hospitalization, Other)
  Sender: FDA-Public Use
  Company Number: JP-GSKNCCC-Case-01860082_AE-77647

PATIENT

DRUGS (11)
  1. LAMICTAL [Suspect]
     Active Substance: LAMOTRIGINE
     Indication: Bipolar disorder
     Dosage: 200 MG, 1D
     Dates: start: 201102, end: 201806
  2. LAMICTAL [Suspect]
     Active Substance: LAMOTRIGINE
     Dosage: 150 MG, 1D
     Dates: start: 201806, end: 201906
  3. LAMICTAL [Suspect]
     Active Substance: LAMOTRIGINE
     Dosage: 200 MG, 1D
     Dates: start: 201906, end: 20231113
  4. LAMICTAL [Suspect]
     Active Substance: LAMOTRIGINE
     Dosage: 100 MG, 1D
     Dates: start: 20231122, end: 20231130
  5. LAMICTAL [Suspect]
     Active Substance: LAMOTRIGINE
     Dosage: 150 MG, 1D
     Dates: start: 20231201
  6. DEPAKENE [Concomitant]
     Active Substance: VALPROIC ACID
     Indication: Bipolar disorder
     Dosage: 600 MG, QD
     Route: 048
     Dates: start: 20200707, end: 20231114
  7. DEPAKENE [Concomitant]
     Active Substance: VALPROIC ACID
     Indication: Mood swings
  8. MIRTAZAPINE [Concomitant]
     Active Substance: MIRTAZAPINE
     Indication: Depression
     Dosage: 22.5 MG, QD
     Route: 048
     Dates: start: 20201027, end: 20231114
  9. PREDNISOLONE [Concomitant]
     Active Substance: PREDNISOLONE
     Indication: Behcet^s syndrome
     Dosage: 4 MG, QD
     Route: 048
     Dates: start: 20231003, end: 20231114
  10. METHOTREXATE [Concomitant]
     Active Substance: METHOTREXATE
     Indication: Behcet^s syndrome
     Dosage: 12 MG, QD
     Route: 048
     Dates: start: 20231003, end: 20231114
  11. REMICADE [Concomitant]
     Active Substance: INFLIXIMAB
     Indication: Behcet^s syndrome
     Dosage: 550 MG, QD
     Route: 041
     Dates: start: 20231003, end: 20231003

REACTIONS (3)
  - Ileus [Recovering/Resolving]
  - Vomiting [Recovering/Resolving]
  - Behcet^s syndrome [Recovering/Resolving]

NARRATIVE: CASE EVENT DATE: 20231113
